FAERS Safety Report 4628331-0 (Version None)
Quarter: 2005Q2

REPORT INFORMATION
  Report Type: 
  Country: None (occurrence: None)
  Receive Date: 20050401
  Receipt Date: 20050314
  Transmission Date: 20051028
  Serious: Yes (Other)
  Sender: FDA-Public Use
  Company Number: 1765

PATIENT
  Age: 51 Year
  Sex: Male

DRUGS (4)
  1. AVINZA [Suspect]
     Indication: BACK PAIN
     Dosage: 60 MG QD PO
     Route: 048
     Dates: start: 20040301, end: 20050305
  2. AMITRIPTYLINE HCL TAB [Concomitant]
  3. CYCLOBENZAPRINE HCL [Concomitant]
  4. OXYCODONE [Concomitant]

REACTIONS (5)
  - DEPRESSION [None]
  - FEELING ABNORMAL [None]
  - INSOMNIA [None]
  - PAIN [None]
  - SUICIDAL IDEATION [None]
